FAERS Safety Report 16081618 (Version 1)
Quarter: 2019Q1

REPORT INFORMATION
  Report Type: Spontaneous
  Country: SK (occurrence: SK)
  Receive Date: 20190316
  Receipt Date: 20190316
  Transmission Date: 20190418
  Serious: Yes (Disabling, Other)
  Sender: FDA-Public Use
  Company Number: SK-REGENERON PHARMACEUTICALS, INC.-2019-22252

PATIENT

DRUGS (2)
  1. EYLEA [Suspect]
     Active Substance: AFLIBERCEPT
     Dosage: UNK, OU, LAST DOSE PRIOR TO EVENT
     Dates: start: 20190206, end: 20190206
  2. EYLEA [Suspect]
     Active Substance: AFLIBERCEPT
     Indication: NEOVASCULAR AGE-RELATED MACULAR DEGENERATION
     Dosage: UNK, OU, RECEIVED TOTAL OF 6 DOSES PRIOR TO EVENT

REACTIONS (3)
  - Blindness [Unknown]
  - Retinal exudates [Unknown]
  - Endophthalmitis [Recovering/Resolving]

NARRATIVE: CASE EVENT DATE: 20190215
